FAERS Safety Report 7718787-9 (Version None)
Quarter: 2011Q3

REPORT INFORMATION
  Report Type: 
  Country: None (occurrence: None)
  Receive Date: 20110830
  Receipt Date: 20110823
  Transmission Date: 20111222
  Serious: Yes (Other)
  Sender: FDA-Public Use
  Company Number: IT-PFIZER INC-2011197324

PATIENT
  Sex: Male

DRUGS (1)
  1. TYGACIL [Suspect]

REACTIONS (3)
  - ACTIVATED PARTIAL THROMBOPLASTIN TIME ABNORMAL [None]
  - HYPOCOAGULABLE STATE [None]
  - THROMBIN-ANTITHROMBIN III COMPLEX ABNORMAL [None]
